FAERS Safety Report 16689063 (Version 1)
Quarter: 2019Q3

REPORT INFORMATION
  Report Type: Spontaneous
  Country: US (occurrence: US)
  Receive Date: 20190809
  Receipt Date: 20190809
  Transmission Date: 20191004
  Serious: Yes (Other)
  Sender: FDA-Public Use
  Company Number: US-MYLANLABS-2019M1072754

PATIENT
  Age: 70 Year
  Sex: Female

DRUGS (8)
  1. PHENYTOIN. [Concomitant]
     Active Substance: PHENYTOIN
     Route: 065
  2. METOPROLOL SUCCINATE. [Concomitant]
     Active Substance: METOPROLOL SUCCINATE
     Route: 065
  3. WARFARIN [Suspect]
     Active Substance: WARFARIN
     Indication: ANTICOAGULANT THERAPY
     Dosage: DAILY EXCEPT FOR WEDNESDAY
     Route: 065
  4. GINGER                             /01646601/ [Interacting]
     Active Substance: GINGER
     Indication: SUPPLEMENTATION THERAPY
     Dosage: CHEWABLE FORMULATION
     Route: 048
  5. CLONAZEPAM. [Concomitant]
     Active Substance: CLONAZEPAM
     Route: 065
  6. WARFARIN [Interacting]
     Active Substance: WARFARIN
     Dosage: ONLY ON WEDNESDAY
     Route: 065
  7. PAROXETINE. [Concomitant]
     Active Substance: PAROXETINE
     Route: 065
  8. ROSUVASTATIN. [Concomitant]
     Active Substance: ROSUVASTATIN
     Route: 065

REACTIONS (2)
  - Drug interaction [Recovered/Resolved]
  - Anticoagulation drug level above therapeutic [Recovered/Resolved]
